FAERS Safety Report 14071634 (Version 2)
Quarter: 2018Q1

REPORT INFORMATION
  Report Type: Spontaneous
  Country: US (occurrence: US)
  Receive Date: 20171010
  Receipt Date: 20180105
  Transmission Date: 20180508
  Serious: No
  Sender: FDA-Public Use
  Company Number: US-SA-2017SA149742

PATIENT
  Age: 56 Year
  Sex: Male
  Weight: 90.71 kg

DRUGS (4)
  1. BETAMETHASONE. [Concomitant]
     Active Substance: BETAMETHASONE
     Route: 065
  2. LORAZEPAM. [Concomitant]
     Active Substance: LORAZEPAM
  3. ALLERGEN [Concomitant]
     Active Substance: UNSPECIFIED INGREDIENT
  4. DUPIXENT [Suspect]
     Active Substance: DUPILUMAB
     Indication: DERMATITIS ATOPIC
     Dosage: DOSE - 300
     Route: 058
     Dates: start: 20170626

REACTIONS (2)
  - Conjunctivitis [Recovered/Resolved]
  - Eye irritation [Not Recovered/Not Resolved]

NARRATIVE: CASE EVENT DATE: 20170706
